FAERS Safety Report 10452195 (Version 1)
Quarter: 2014Q3

REPORT INFORMATION
  Report Type: Spontaneous
  Country: TR (occurrence: None)
  Receive Date: 20140911
  Receipt Date: 20140911
  Transmission Date: 20150326
  Serious: Yes (Hospitalization, Other)
  Sender: FDA-Public Use
  Company Number: TR-ZYDUS-004945

PATIENT
  Age: 47 Year
  Sex: Female

DRUGS (2)
  1. PEGINTERFERON ALFA-2A [Suspect]
     Active Substance: PEGINTERFERON ALFA-2A
     Indication: HEPATITIS C
     Dosage: 100.00-UG-1.0WEEKS /SUBCUTANEOUS
     Route: 058
  2. RIBAVIRIN. [Suspect]
     Active Substance: RIBAVIRIN
     Indication: HEPATITIS C
     Dosage: 400.00-MG-2.00 TIMES PER-1.0 DAYS

REACTIONS (4)
  - Pulmonary embolism [None]
  - Tachycardia [None]
  - Interstitial lung disease [None]
  - Hypotension [None]
